FAERS Safety Report 7957190-3 (Version None)
Quarter: 2011Q4

REPORT INFORMATION
  Report Type: 
  Country: None (occurrence: None)
  Receive Date: 20111205
  Receipt Date: 20111129
  Transmission Date: 20120403
  Serious: Yes (Hospitalization)
  Sender: FDA-Public Use
  Company Number: IT-BRISTOL-MYERS SQUIBB COMPANY-16262586

PATIENT
  Age: 74 Year
  Sex: Male

DRUGS (10)
  1. COUMADIN [Suspect]
     Indication: ATRIAL FIBRILLATION
     Dosage: COUMADIN TABS 5 MG 1 UNIT
     Route: 048
     Dates: start: 20080101, end: 20111104
  2. TAMSULOSIN HYDROCHLORIDE [Concomitant]
     Indication: BENIGN PROSTATIC HYPERPLASIA
  3. ATORVASTATIN CALCIUM [Concomitant]
     Indication: HYPERCHOLESTEROLAEMIA
  4. ESKIM [Concomitant]
     Indication: HYPERTRIGLYCERIDAEMIA
  5. ACETYLSALICYLIC ACID SRT [Suspect]
     Indication: ATRIAL FIBRILLATION
     Dosage: 100 UNITS NOS
     Route: 048
     Dates: start: 20080101, end: 20111104
  6. LASIX [Suspect]
     Indication: HYPERTENSION
     Dosage: LASIX 25MG TABS, 1 UNIT/DAY
     Route: 048
     Dates: start: 20080101, end: 20111104
  7. MICARDIS [Suspect]
     Dosage: MICARDIS 80MG, 1 UNIT/DAY
     Dates: start: 20080101, end: 20111104
  8. METFORMIN HCL [Concomitant]
     Route: 048
  9. OMEPRAZOLE [Concomitant]
     Route: 048
  10. NITRODERM [Concomitant]
     Indication: MYOCARDIAL ISCHAEMIA

REACTIONS (1)
  - ANAEMIA [None]
